FAERS Safety Report 13645111 (Version 1)
Quarter: 2017Q2

REPORT INFORMATION
  Report Type: Spontaneous
  Country: US (occurrence: US)
  Receive Date: 20170612
  Receipt Date: 20170612
  Transmission Date: 20170830
  Serious: No
  Sender: FDA-Public Use
  Company Number: US-ROCHE-1311168

PATIENT
  Age: 67 Year
  Sex: Female

DRUGS (3)
  1. SALMON OIL [Concomitant]
     Active Substance: FISH OIL
  2. SIFROL [Concomitant]
     Active Substance: PRAMIPEXOLE
  3. XELODA [Suspect]
     Active Substance: CAPECITABINE
     Indication: PRODUCT USED FOR UNKNOWN INDICATION
     Dosage: 14 DAYS ON AND 7 DAYS OFF
     Route: 048
     Dates: start: 20131111

REACTIONS (3)
  - Nausea [Unknown]
  - Chapped lips [Unknown]
  - Lip blister [Unknown]

NARRATIVE: CASE EVENT DATE: 20131121
